FAERS Safety Report 7213863-1 (Version None)
Quarter: 2011Q1

REPORT INFORMATION
  Report Type: 
  Country: None (occurrence: None)
  Receive Date: 20110106
  Receipt Date: 20101228
  Transmission Date: 20110831
  Serious: Yes (Other)
  Sender: FDA-Public Use
  Company Number: JP-BAXTER-2010BH030533

PATIENT
  Age: 20 Year
  Sex: Male

DRUGS (5)
  1. ETOPOSIDE [Suspect]
     Indication: UNDIFFERENTIATED SARCOMA
     Route: 065
  2. CYCLOPHOSPHAMIDE [Concomitant]
     Indication: UNDIFFERENTIATED SARCOMA
     Route: 065
  3. IFOMIDE [Concomitant]
     Indication: UNDIFFERENTIATED SARCOMA
     Route: 065
  4. DOXORUBICIN HYDROCHLORIDE [Concomitant]
     Indication: UNDIFFERENTIATED SARCOMA
     Route: 065
  5. VINCRISTINE SULFATE [Concomitant]
     Indication: UNDIFFERENTIATED SARCOMA
     Route: 065

REACTIONS (2)
  - BONE MARROW FAILURE [None]
  - CHOLANGITIS [None]
